FAERS Safety Report 12320094 (Version 3)
Quarter: 2016Q4

REPORT INFORMATION
  Report Type: Report from Study
  Country: None (occurrence: CA)
  Receive Date: 20160429
  Receipt Date: 20161006
  Transmission Date: 20170207
  Serious: Yes (Hospitalization, Other)
  Sender: FDA-Public Use
  Company Number: CA-ABBVIE-16P-028-1610250-00

PATIENT
  Age: 76 Year
  Sex: Male
  Weight: 70 kg

DRUGS (7)
  1. ASPIRIN. [Concomitant]
     Active Substance: ASPIRIN
     Indication: HYPERTENSION
     Route: 048
     Dates: start: 2015
  2. HOLKIRA PAK [Suspect]
     Active Substance: DASABUVIR\OMBITASVIR\PARITAPREVIR\RITONAVIR
     Indication: HEPATITIS C
     Dosage: PARITAPREVIR/R-OMBITASVIR:150/100/25MG QD,DASABUVIR:250 MG BID
     Route: 048
     Dates: start: 20151209, end: 20160303
  3. PANTOLOC [Concomitant]
     Active Substance: PANTOPRAZOLE SODIUM
     Indication: HYPERCHLORHYDRIA
     Dates: start: 2015
  4. RAMIPRIL. [Concomitant]
     Active Substance: RAMIPRIL
     Indication: HYPERTENSION
     Route: 048
     Dates: start: 2015
  5. SPIRONOLACTONE. [Concomitant]
     Active Substance: SPIRONOLACTONE
     Indication: PRODUCT USED FOR UNKNOWN INDICATION
  6. ACETMINOPHEN/CODEINE/CAFFEINE 300MG-20MG-15MG [Concomitant]
     Indication: BACK PAIN
     Dosage: PRN
     Route: 048
     Dates: start: 2015
  7. PANTOLOC [Concomitant]
     Active Substance: PANTOPRAZOLE SODIUM
     Indication: PRODUCT USED FOR UNKNOWN INDICATION

REACTIONS (1)
  - Ascites [Recovering/Resolving]

NARRATIVE: CASE EVENT DATE: 20160404
